FAERS Safety Report 16667703 (Version 2)
Quarter: 2019Q3

REPORT INFORMATION
  Report Type: Spontaneous
  Country: RO (occurrence: RO)
  Receive Date: 20190805
  Receipt Date: 20190813
  Transmission Date: 20191004
  Serious: Yes (Hospitalization)
  Sender: FDA-Public Use
  Company Number: RO-PFIZER INC-2019294143

PATIENT
  Age: 41 Year
  Sex: Male
  Weight: 75 kg

DRUGS (4)
  1. FENTANYL. [Concomitant]
     Active Substance: FENTANYL
     Dosage: 50 UNK, UNK
  2. METFOGAMMA [Concomitant]
     Active Substance: METFORMIN HYDROCHLORIDE
     Dosage: UNK
  3. TRAMADOL. [Concomitant]
     Active Substance: TRAMADOL
     Dosage: UNK
  4. SUTENT [Suspect]
     Active Substance: SUNITINIB MALATE
     Indication: RENAL CANCER METASTATIC
     Dosage: 50 MG/DAY CYCLIC 28 DAYS ON TREATMENT WITH 14 DAYS PAUSE
     Route: 048
     Dates: start: 20190515, end: 20190629

REACTIONS (3)
  - Nausea [Recovering/Resolving]
  - General physical condition decreased [Recovering/Resolving]
  - Anaemia [Unknown]

NARRATIVE: CASE EVENT DATE: 20190614
